FAERS Safety Report 7488828-5 (Version None)
Quarter: 2011Q2

REPORT INFORMATION
  Report Type: 
  Country: None (occurrence: None)
  Receive Date: 20110518
  Receipt Date: 20110510
  Transmission Date: 20111010
  Serious: Yes (Hospitalization)
  Sender: FDA-Public Use
  Company Number: GB-PFIZER INC-2011100819

PATIENT
  Age: 53 Year
  Sex: Female

DRUGS (2)
  1. METRONIDAZOLE [Suspect]
     Indication: PELVIC INFECTION
  2. AMPICILLIN SODIUM/SULBACTAM SODIUM [Suspect]
     Indication: PELVIC INFECTION

REACTIONS (2)
  - CANDIDIASIS [None]
  - TONGUE DISCOLOURATION [None]
